FAERS Safety Report 16416822 (Version 1)
Quarter: 2019Q2

REPORT INFORMATION
  Report Type: Spontaneous
  Country: FR (occurrence: FR)
  Receive Date: 20190611
  Receipt Date: 20190611
  Transmission Date: 20190711
  Serious: Yes (Other)
  Sender: FDA-Public Use
  Company Number: FR-009507513-1904FRA005756

PATIENT
  Age: 82 Year
  Sex: Male

DRUGS (7)
  1. TENORMINE [Concomitant]
     Active Substance: ATENOLOL
     Dosage: 2 PER DAY, CONCENTRATION: 100 (UNITS NOT PROVIDED), START DATE: BEFORE 2018
  2. EZETROL [Suspect]
     Active Substance: EZETIMIBE
     Indication: HIGH DENSITY LIPOPROTEIN INCREASED
     Dosage: ONE
     Route: 048
     Dates: start: 20181129, end: 201812
  3. PENTOXIFYLLINE. [Concomitant]
     Active Substance: PENTOXIFYLLINE
     Dosage: 1 PER DAY, CONCENTRATION: 400 (UNITS NOT PROVIDED), START DATE: BEFORE 2018
  4. BRILIQUE [Concomitant]
     Active Substance: TICAGRELOR
     Dosage: ONE, START DATE: BEFORE 2018
  5. GLUCOPHAGE [Concomitant]
     Active Substance: METFORMIN HYDROCHLORIDE
     Indication: TYPE 2 DIABETES MELLITUS
     Dosage: ONE, CONCENTRATION: 500 (UNITS NOT PROVIDED), START DATE: BEFORE 2013
  6. MOPRAL (OMEPRAZOLE) [Concomitant]
     Active Substance: OMEPRAZOLE SODIUM
     Indication: PROPHYLAXIS AGAINST GASTROINTESTINAL ULCER
     Dosage: 1 PER DAY, CONCENTRATION: 10 (UNITS NOT PROVIDED), START DATE: BEFORE 2013
  7. ASPIRIN PROTECT [Concomitant]
     Active Substance: ASPIRIN
     Dosage: 1 PER DAY, START DATE: BEFORE 2013

REACTIONS (1)
  - Tendonitis [Recovered/Resolved]

NARRATIVE: CASE EVENT DATE: 201812
